FAERS Safety Report 7073401-3 (Version None)
Quarter: 2010Q4

REPORT INFORMATION
  Report Type: 
  Country: None (occurrence: None)
  Receive Date: 20101029
  Receipt Date: 20100610
  Transmission Date: 20110411
  Serious: No
  Sender: FDA-Public Use
  Company Number: A0864310A

PATIENT
  Sex: Female

DRUGS (2)
  1. ADVAIR DISKUS 100/50 [Suspect]
     Dosage: 1PUFF TWICE PER DAY
     Route: 055
     Dates: start: 20090801
  2. SYNTHROID [Concomitant]

REACTIONS (6)
  - AGITATION [None]
  - ANXIETY [None]
  - FEELING JITTERY [None]
  - MIDDLE INSOMNIA [None]
  - PALPITATIONS [None]
  - PANIC REACTION [None]
